FAERS Safety Report 9622485 (Version 1)
Quarter: 2013Q4

REPORT INFORMATION
  Report Type: Spontaneous
  Country: US (occurrence: None)
  Receive Date: 20131010
  Receipt Date: 20131010
  Transmission Date: 20140711
  Serious: Yes (Other)
  Sender: FDA-Public Use
  Company Number: 2013-121199

PATIENT
  Age: 86 Year
  Sex: Female
  Weight: 68.04 kg

DRUGS (3)
  1. ONE A DAY WOMEN^S (MULTIVITAMINS+MINERALS) FILM COATED TABLET [Suspect]
     Dosage: 1 DF, QD WITH FOOD
     Route: 048
     Dates: start: 201308, end: 20131007
  2. LEVOTHYROXINE (LEVOTHYROXINE) [Concomitant]
  3. PRAVASTATIN (PRAVASTATIN) [Concomitant]

REACTIONS (2)
  - Choking [None]
  - Throat irritation [None]
